FAERS Safety Report 8231151-1 (Version None)
Quarter: 2012Q1

REPORT INFORMATION
  Report Type: 
  Country: None (occurrence: None)
  Receive Date: 20120320
  Receipt Date: 20120312
  Transmission Date: 20120608
  Serious: Yes (Hospitalization)
  Sender: FDA-Public Use
  Company Number: AUR-APL-2012-01123

PATIENT
  Age: 62 Year
  Sex: Female
  Weight: 58.9676 kg

DRUGS (3)
  1. ALENDRONIC ACID (ALENDRONIC ACID) [Suspect]
     Indication: OSTEOPOROSIS
     Dosage: 10 MG (70 MG,1 IN 1 WK),ORAL
     Route: 048
     Dates: start: 20120121
  2. MONISTAT CREAM (MICONAZOLE NITRATE) [Concomitant]
  3. PREMARIN [Concomitant]

REACTIONS (4)
  - LOSS OF CONSCIOUSNESS [None]
  - RASH PRURITIC [None]
  - NAUSEA [None]
  - RASH PAPULAR [None]
